FAERS Safety Report 5925463-1 (Version None)
Quarter: 2008Q4

REPORT INFORMATION
  Report Type: 
  Country: None (occurrence: None)
  Receive Date: 20081021
  Receipt Date: 20081010
  Transmission Date: 20090506
  Serious: Yes (Hospitalization, Other)
  Sender: FDA-Public Use
  Company Number: US-MERCK-0708USA02520

PATIENT
  Age: 57 Year
  Sex: Female
  Weight: 52 kg

DRUGS (4)
  1. FOSAMAX [Suspect]
     Indication: OSTEOPOROSIS
     Route: 048
     Dates: start: 20030114, end: 20060604
  2. FOSAMAX [Suspect]
     Route: 048
     Dates: start: 19991101
  3. PREMPHASE 14/14 [Concomitant]
     Indication: DIZZINESS
     Route: 065
     Dates: start: 19980101
  4. [THERAPY UNSPECIFIED] [Concomitant]
     Indication: HYPERTENSION
     Route: 065
     Dates: start: 19970101

REACTIONS (14)
  - ANAEMIA POSTOPERATIVE [None]
  - ANXIETY [None]
  - CHRONIC OBSTRUCTIVE PULMONARY DISEASE [None]
  - DEPRESSION [None]
  - GLAUCOMA [None]
  - HYPOAESTHESIA ORAL [None]
  - JAW FRACTURE [None]
  - LEFT VENTRICULAR HYPERTROPHY [None]
  - MYOCARDIAL ISCHAEMIA [None]
  - NON-SMALL CELL LUNG CANCER [None]
  - OSTEONECROSIS [None]
  - PAIN IN JAW [None]
  - PARAESTHESIA [None]
  - TRICUSPID VALVE INCOMPETENCE [None]
